FAERS Safety Report 4514109-5 (Version None)
Quarter: 2004Q4

REPORT INFORMATION
  Report Type: 
  Country: None (occurrence: None)
  Receive Date: 20041124
  Receipt Date: 20041116
  Transmission Date: 20050328
  Serious: Yes (Hospitalization)
  Sender: FDA-Public Use
  Company Number: MK200411-0172-1

PATIENT
  Age: 73 Year
  Sex: Male

DRUGS (10)
  1. ANAFRANIL [Suspect]
     Dosage: 37.5 MG, DAILY
     Dates: start: 20030922, end: 20031203
  2. REMERGIL [Suspect]
     Dosage: 30-45 MG DAILY
     Dates: start: 20031113, end: 20031203
  3. FEVARIN [Suspect]
     Dosage: 50 MG DAILY
     Dates: start: 20031107, end: 20031203
  4. ACTONEL [Concomitant]
  5. ACTOVEGIN FORTE DRAGEES [Concomitant]
  6. CHLORALDURAT [Concomitant]
  7. DIPIPERON [Concomitant]
  8. DYTIDE H [Concomitant]
  9. ATORVASTATIN CALCIUM [Concomitant]
  10. VENLAFAXINE HCL [Concomitant]

REACTIONS (1)
  - HEPATIC STEATOSIS [None]
